FAERS Safety Report 19093529 (Version 3)
Quarter: 2021Q3

REPORT INFORMATION
  Report Type: Spontaneous
  Country: NZ (occurrence: NZ)
  Receive Date: 20210405
  Receipt Date: 20210830
  Transmission Date: 20211014
  Serious: Yes (Disabling, Other)
  Sender: FDA-Public Use
  Company Number: NZ-ROCHE-2777297

PATIENT
  Age: 75 Year
  Sex: Female
  Weight: 75 kg

DRUGS (5)
  1. ACETAMINOPHEN. [Concomitant]
     Active Substance: ACETAMINOPHEN
     Route: 048
  2. ACTEMRA [Suspect]
     Active Substance: TOCILIZUMAB
     Indication: GIANT CELL ARTERITIS
     Dosage: ON 19/FEB/2021, SHE RECEIVED MOST RECENT INJECTION.
     Route: 058
     Dates: start: 20201217
  3. METHOTREXATE. [Concomitant]
     Active Substance: METHOTREXATE
  4. PREDNISONE TEVA [Concomitant]
     Active Substance: PREDNISONE
     Route: 048
  5. ATORVASTATIN [Concomitant]
     Active Substance: ATORVASTATIN
     Route: 048

REACTIONS (12)
  - Throat tightness [Not Recovered/Not Resolved]
  - Swelling [Unknown]
  - Hepatic steatosis [Unknown]
  - Hepatitis [Unknown]
  - Dysphagia [Unknown]
  - Myalgia [Not Recovered/Not Resolved]
  - Decreased appetite [Not Recovered/Not Resolved]
  - Renal disorder [Unknown]
  - Headache [Not Recovered/Not Resolved]
  - Nausea [Not Recovered/Not Resolved]
  - Dyspnoea [Unknown]
  - Hepatic function abnormal [Recovered/Resolved]

NARRATIVE: CASE EVENT DATE: 20201217
